FAERS Safety Report 8393384-3 (Version None)
Quarter: 2012Q2

REPORT INFORMATION
  Report Type: 
  Country: None (occurrence: None)
  Receive Date: 20120529
  Receipt Date: 20120521
  Transmission Date: 20120825
  Serious: Yes (Hospitalization, Other)
  Sender: FDA-Public Use
  Company Number: SI-UCBSA-8028974

PATIENT
  Age: 38 Year
  Sex: Male
  Weight: 79 kg

DRUGS (8)
  1. MESALAMINE [Concomitant]
     Indication: CROHN'S DISEASE
     Route: 048
     Dates: start: 20001220
  2. PLIVIT B6 [Concomitant]
     Indication: ANTIBIOTIC PROPHYLAXIS
     Route: 048
     Dates: start: 20071203
  3. CIMZIA [Suspect]
     Dosage: - NR OF DOSES :3
     Route: 058
     Dates: start: 20040706, end: 20040803
  4. EUTHYROX [Concomitant]
     Indication: AUTOIMMUNE THYROIDITIS
     Route: 048
     Dates: start: 20050127
  5. CIMZIA [Suspect]
     Dosage: DOSE FREQ.: ONCE MONTHLY - NR OF DOSES :5
     Route: 058
     Dates: start: 20040831, end: 20041221
  6. AMOXICILLIN AND CLAVULANATE POTASSIUM [Concomitant]
     Indication: URINARY TRACT INFECTION
     Route: 048
     Dates: start: 20071112, end: 20071117
  7. CIMZIA [Suspect]
     Indication: CROHN'S DISEASE
     Dosage: DOSE FREQ.: ONCE MONTHLY, NO OF DOSES RECEIVED: 39
     Route: 058
     Dates: start: 20050118, end: 20071218
  8. RIFAMPIN AND ISONIAZID [Concomitant]
     Indication: ANTIBIOTIC PROPHYLAXIS
     Dosage: 600/300 ONCE DAILY
     Route: 048
     Dates: start: 20071203

REACTIONS (2)
  - PROSTATITIS [None]
  - ABSCESS INTESTINAL [None]
